FAERS Safety Report 11467630 (Version 1)
Quarter: 2015Q3

REPORT INFORMATION
  Report Type: Report from Study
  Country: AU (occurrence: AU)
  Receive Date: 20150908
  Receipt Date: 20150908
  Transmission Date: 20151125
  Serious: Yes (Other)
  Sender: FDA-Public Use
  Company Number: PHHY2015AU107584

PATIENT
  Age: 49 Year
  Sex: Male
  Weight: 87 kg

DRUGS (1)
  1. CLOZARIL [Suspect]
     Active Substance: CLOZAPINE
     Indication: SCHIZOPHRENIA
     Dosage: 525 OT, UNK
     Route: 048
     Dates: start: 19930520

REACTIONS (4)
  - Tricuspid valve incompetence [Unknown]
  - Aortic valve calcification [Unknown]
  - Bundle branch block left [Unknown]
  - Blood pressure increased [Unknown]

NARRATIVE: CASE EVENT DATE: 20150819
